FAERS Safety Report 4526640-7 (Version None)
Quarter: 2004Q4

REPORT INFORMATION
  Report Type: 
  Country: None (occurrence: None)
  Receive Date: 20041214
  Receipt Date: 20041206
  Transmission Date: 20050328
  Serious: Yes (Hospitalization)
  Sender: FDA-Public Use
  Company Number: US-GLAXOSMITHKLINE-A0536501A

PATIENT
  Age: 44 Year
  Sex: Female

DRUGS (2)
  1. PAXIL [Suspect]
     Dosage: 25MG PER DAY
     Route: 048
     Dates: start: 20040527
  2. NO CONCURRENT MEDICATION [Concomitant]

REACTIONS (3)
  - HEADACHE [None]
  - SENSORY DISTURBANCE [None]
  - TINNITUS [None]
